FAERS Safety Report 7535314-X (Version None)
Quarter: 2011Q2

REPORT INFORMATION
  Report Type: 
  Country: None (occurrence: None)
  Receive Date: 20110609
  Receipt Date: 20080129
  Transmission Date: 20111010
  Serious: Yes (Other)
  Sender: FDA-Public Use
  Company Number: PHFR2007GB03528

PATIENT
  Sex: Male

DRUGS (2)
  1. CLOZAPINE [Suspect]
     Indication: SCHIZOPHRENIA
     Dosage: 700 MG DAILY
     Route: 048
     Dates: start: 20020405
  2. ANTACIDS [Concomitant]
     Indication: DYSPEPSIA
     Dosage: 20 MG, DAILY
     Route: 048

REACTIONS (3)
  - ORAL MUCOSAL EXFOLIATION [None]
  - TOOTH EROSION [None]
  - MEAN CELL VOLUME INCREASED [None]
